FAERS Safety Report 16844586 (Version 1)
Quarter: 2019Q4

REPORT INFORMATION
  Report Type: Spontaneous
  Country: US (occurrence: US)
  Receive Date: 20190923
  Receipt Date: 20190923
  Transmission Date: 20200122
  Serious: No
  Sender: FDA-Public Use
  Company Number: None

PATIENT
  Age: 42 Year
  Sex: Female
  Weight: 118.8 kg

DRUGS (3)
  1. IRON [Concomitant]
     Active Substance: IRON
  2. VITAMIN D [Concomitant]
     Active Substance: VITAMIN D NOS
  3. DULOXETINE 60MG [Suspect]
     Active Substance: DULOXETINE
     Indication: DEPRESSION
     Dosage: ?          QUANTITY:1 CAPSULE(S);?
     Route: 048
     Dates: start: 20181206, end: 20190831

REACTIONS (4)
  - Dizziness [None]
  - Influenza like illness [None]
  - Diarrhoea [None]
  - Nausea [None]

NARRATIVE: CASE EVENT DATE: 20190831
